FAERS Safety Report 19955095 (Version 1)
Quarter: 2021Q4

REPORT INFORMATION
  Report Type: Spontaneous
  Country: JP (occurrence: JP)
  Receive Date: 20211013
  Receipt Date: 20211013
  Transmission Date: 20220304
  Serious: Yes (Hospitalization)
  Sender: FDA-Public Use
  Company Number: JP-ASSERTIO THERAPEUTICS, INC.-JP-2021AST000168

PATIENT
  Age: 34 Year
  Sex: Male

DRUGS (1)
  1. DICLOFENAC [Suspect]
     Active Substance: DICLOFENAC
     Indication: Pyrexia

REACTIONS (1)
  - Tubulointerstitial nephritis and uveitis syndrome [Recovered/Resolved]
